FAERS Safety Report 18597399 (Version 1)
Quarter: 2020Q4

REPORT INFORMATION
  Report Type: Spontaneous
  Country: US (occurrence: US)
  Receive Date: 20201209
  Receipt Date: 20201209
  Transmission Date: 20210114
  Serious: No
  Sender: FDA-Public Use
  Company Number: US-IBSA PHARMA INC.-2020IBS000122

PATIENT

DRUGS (5)
  1. TIROSINT [Suspect]
     Active Substance: LEVOTHYROXINE SODIUM
     Indication: POST PROCEDURAL HYPOTHYROIDISM
     Dosage: 100 TO 200 MCG DAILY
     Route: 048
     Dates: start: 2015, end: 20200306
  2. TIROSINT [Suspect]
     Active Substance: LEVOTHYROXINE SODIUM
     Dosage: 4 CAPSULES 100MCG DAILY
     Route: 048
     Dates: start: 20200501
  3. TIROSINT [Suspect]
     Active Substance: LEVOTHYROXINE SODIUM
     Dosage: 3 CAPSULES 88MCG DAILY ON WEDNESDAY, FRIDAY SUNDAY
     Route: 048
     Dates: start: 20200603
  4. TIROSINT [Suspect]
     Active Substance: LEVOTHYROXINE SODIUM
     Dosage: 4 CAPSULES 100 MCG DAILY ON MONDAY, TUESDAY, THURSDAY, SATURDAY
     Dates: start: 202006
  5. TIROSINT [Suspect]
     Active Substance: LEVOTHYROXINE SODIUM
     Dosage: 3 CAPSULES 100 MCG, QD
     Route: 048
     Dates: start: 20200307, end: 20200430

REACTIONS (2)
  - Product size issue [Unknown]
  - Blood thyroid stimulating hormone abnormal [Not Recovered/Not Resolved]

NARRATIVE: CASE EVENT DATE: 2020
